FAERS Safety Report 19416824 (Version 2)
Quarter: 2021Q3

REPORT INFORMATION
  Report Type: Spontaneous
  Country: US (occurrence: US)
  Receive Date: 20210614
  Receipt Date: 20210928
  Transmission Date: 20211014
  Serious: Yes (Other)
  Sender: FDA-Public Use
  Company Number: US-ALXN-A202106675

PATIENT
  Sex: Male

DRUGS (1)
  1. SOLIRIS [Suspect]
     Active Substance: ECULIZUMAB
     Indication: NEUROMYELITIS OPTICA SPECTRUM DISORDER
     Dosage: UNK
     Route: 065

REACTIONS (6)
  - Neuromyelitis optica spectrum disorder [Unknown]
  - Anxiety [Unknown]
  - Gait inability [Unknown]
  - Eye pruritus [Unknown]
  - Eye swelling [Unknown]
  - Inappropriate schedule of product administration [Unknown]
